FAERS Safety Report 24890726 (Version 3)
Quarter: 2025Q2

REPORT INFORMATION
  Report Type: Report from Study
  Country: US (occurrence: US)
  Receive Date: 20250127
  Receipt Date: 20250623
  Transmission Date: 20250717
  Serious: No
  Sender: SUNOVION
  Company Number: US-SUMITOMO PHARMA SWITZERLAND GMBH-2025SPA000467

PATIENT

DRUGS (2)
  1. ORGOVYX [Suspect]
     Active Substance: RELUGOLIX
     Indication: Prostate cancer
     Route: 048
  2. ORGOVYX [Suspect]
     Active Substance: RELUGOLIX
     Dosage: 120 MG, QD
     Route: 048
     Dates: start: 20241213

REACTIONS (7)
  - Erectile dysfunction [Unknown]
  - Blood pressure abnormal [Unknown]
  - Feeling cold [Unknown]
  - Hot flush [Unknown]
  - Libido decreased [Unknown]
  - Fatigue [Unknown]
  - Weight increased [Unknown]
